FAERS Safety Report 6818121-2 (Version None)
Quarter: 2010Q3

REPORT INFORMATION
  Report Type: 
  Country: None (occurrence: None)
  Receive Date: 20100706
  Receipt Date: 20100701
  Transmission Date: 20110219
  Serious: Yes (Other)
  Sender: FDA-Public Use
  Company Number: CHPA2010US10861

PATIENT
  Age: 58 Year
  Sex: Female
  Weight: 69.388 kg

DRUGS (2)
  1. PRIVATE LABEL (NCH) [Suspect]
     Indication: SMOKING CESSATION THERAPY
     Dosage: 1/ 2 PATCH, UNK
     Route: 062
     Dates: start: 20100629
  2. PRIVATE LABEL (NCH) [Suspect]
     Dosage: 1/2 PATCH, UNK
     Route: 062

REACTIONS (3)
  - NEOPLASM MALIGNANT [None]
  - NERVOUSNESS [None]
  - WRONG TECHNIQUE IN DRUG USAGE PROCESS [None]
